FAERS Safety Report 5335614-8 (Version None)
Quarter: 2007Q2

REPORT INFORMATION
  Report Type: 
  Country: None (occurrence: None)
  Receive Date: 20070522
  Receipt Date: 20070518
  Transmission Date: 20071010
  Serious: Yes (Other)
  Sender: FDA-Public Use
  Company Number: JPI-P-001189

PATIENT
  Age: 28 Year
  Sex: Male
  Weight: 74.8435 kg

DRUGS (3)
  1. XYREM [Suspect]
     Indication: DEPRESSION
     Dosage: ORAL
     Dates: start: 20050101, end: 20060701
  2. XYREM [Suspect]
     Indication: DEPRESSION
     Dosage: ORAL
     Dates: start: 20070115, end: 20070426
  3. TRUE HOPE [Suspect]
     Indication: DEPRESSION
     Dates: start: 20070301

REACTIONS (8)
  - ABNORMAL BEHAVIOUR [None]
  - DRUG ABUSER [None]
  - DRUG INEFFECTIVE [None]
  - DRUG INTERACTION [None]
  - DYSPNOEA [None]
  - FALL [None]
  - INCOHERENT [None]
  - REPETITIVE SPEECH [None]
